FAERS Safety Report 20313486 (Version 1)
Quarter: 2022Q1

REPORT INFORMATION
  Report Type: Spontaneous
  Country: US (occurrence: US)
  Receive Date: 20220110
  Receipt Date: 20220110
  Transmission Date: 20220423
  Serious: Yes (Other)
  Sender: FDA-Public Use
  Company Number: US-BAUSCH-BL-2021-039612

PATIENT
  Sex: Male

DRUGS (2)
  1. CUPRIMINE [Suspect]
     Active Substance: PENICILLAMINE
     Indication: Product used for unknown indication
     Route: 065
  2. PENICILLAMINE [Suspect]
     Active Substance: PENICILLAMINE
     Indication: Product used for unknown indication
     Route: 065

REACTIONS (2)
  - Seizure [Unknown]
  - Product availability issue [Unknown]

NARRATIVE: CASE EVENT DATE: 20211101
